FAERS Safety Report 7311912-3 (Version None)
Quarter: 2011Q1

REPORT INFORMATION
  Report Type: 
  Country: None (occurrence: None)
  Receive Date: 20110224
  Receipt Date: 20110125
  Transmission Date: 20110831
  Serious: Yes (Death)
  Sender: FDA-Public Use
  Company Number: PHHY2011US11676

PATIENT
  Age: 80 Year
  Sex: Male
  Weight: 96.98 kg

DRUGS (1)
  1. TASIGNA [Suspect]
     Indication: METASTASIS
     Dosage: 400 MG, BID
     Route: 048
     Dates: start: 20101202, end: 20101220

REACTIONS (1)
  - DEATH [None]
